FAERS Safety Report 12888504 (Version 3)
Quarter: 2016Q4

REPORT INFORMATION
  Report Type: Spontaneous
  Country: US (occurrence: US)
  Receive Date: 20161027
  Receipt Date: 20161108
  Transmission Date: 20170207
  Serious: No
  Sender: FDA-Public Use
  Company Number: US-PFIZER INC-2016495301

PATIENT
  Age: 9 Year
  Sex: Male

DRUGS (1)
  1. QUILLIVANT XR [Suspect]
     Active Substance: METHYLPHENIDATE HYDROCHLORIDE
     Dosage: UNK

REACTIONS (9)
  - Disturbance in attention [Unknown]
  - Social problem [Unknown]
  - Drug ineffective [Unknown]
  - Disruptive mood dysregulation disorder [Unknown]
  - Drug dose omission [Unknown]
  - Developmental delay [Unknown]
  - Psychomotor hyperactivity [Unknown]
  - Drug intolerance [Unknown]
  - Activities of daily living impaired [Unknown]
